FAERS Safety Report 7198480-4 (Version None)
Quarter: 2010Q4

REPORT INFORMATION
  Report Type: 
  Country: None (occurrence: None)
  Receive Date: 20101214
  Receipt Date: 20101129
  Transmission Date: 20110411
  Serious: Yes (Hospitalization)
  Sender: FDA-Public Use
  Company Number: 011941

PATIENT
  Sex: Female

DRUGS (16)
  1. ROTIGOTINE (ROTIGOTINE) [Suspect]
     Indication: PARKINSON'S DISEASE
     Dosage: SEE IMAGE
     Dates: start: 20100121, end: 20100126
  2. ROTIGOTINE (ROTIGOTINE) [Suspect]
     Indication: PARKINSON'S DISEASE
     Dosage: SEE IMAGE
     Dates: start: 20100127, end: 20100202
  3. ROTIGOTINE (ROTIGOTINE) [Suspect]
     Indication: PARKINSON'S DISEASE
     Dosage: SEE IMAGE
     Dates: start: 20100203, end: 20100209
  4. ROTIGOTINE (ROTIGOTINE) [Suspect]
     Indication: PARKINSON'S DISEASE
     Dosage: SEE IMAGE
     Dates: start: 20100210, end: 20100216
  5. ROTIGOTINE (ROTIGOTINE) [Suspect]
     Indication: PARKINSON'S DISEASE
     Dosage: SEE IMAGE
     Dates: start: 20100217, end: 20100223
  6. ROTIGOTINE (ROTIGOTINE) [Suspect]
     Indication: PARKINSON'S DISEASE
     Dosage: SEE IMAGE
     Dates: start: 20100224, end: 20100303
  7. ROTIGOTINE (ROTIGOTINE) [Suspect]
     Indication: PARKINSON'S DISEASE
     Dosage: SEE IMAGE
     Dates: start: 20100304, end: 20100310
  8. ROTIGOTINE (ROTIGOTINE) [Suspect]
     Indication: PARKINSON'S DISEASE
     Dosage: SEE IMAGE
     Dates: start: 20100311, end: 20100506
  9. ATENOLOL [Concomitant]
  10. CARBIDOPA + LEVODOPA [Concomitant]
  11. TRIHEXYPHENIDYL HCL [Concomitant]
  12. SENNOSIDE A+B [Concomitant]
  13. LOXOPROFEN SODIUM [Concomitant]
  14. FELBINAC [Concomitant]
  15. FLUOCINONIDE [Concomitant]
  16. BENIDIPINE HYDROCHLORIDE [Concomitant]

REACTIONS (9)
  - ACTIVITIES OF DAILY LIVING IMPAIRED [None]
  - GAIT DISTURBANCE [None]
  - MUSCLE ATROPHY [None]
  - MUSCLE HYPERTROPHY [None]
  - PAIN [None]
  - POSTURE ABNORMAL [None]
  - TORTICOLLIS [None]
  - TREMOR [None]
  - WHEELCHAIR USER [None]
